FAERS Safety Report 25431519 (Version 1)
Quarter: 2025Q2

REPORT INFORMATION
  Report Type: Report from Study
  Country: BG (occurrence: BG)
  Receive Date: 20250613
  Receipt Date: 20250613
  Transmission Date: 20250717
  Serious: Yes (Hospitalization)
  Sender: ABBVIE
  Company Number: BG-ABBVIE-6057362

PATIENT
  Age: 29 Year
  Sex: Male

DRUGS (1)
  1. HUMIRA [Suspect]
     Active Substance: ADALIMUMAB
     Indication: Crohn^s disease
     Route: 058

REACTIONS (9)
  - Gastrointestinal erosion [Unknown]
  - Anal abscess [Unknown]
  - Abdominal distension [Unknown]
  - Hepatic steatosis [Unknown]
  - Oedema [Unknown]
  - Gastrointestinal mucosa hyperaemia [Unknown]
  - Small intestine polyp [Unknown]
  - Crohn^s disease [Unknown]
  - Drug specific antibody present [Unknown]

NARRATIVE: CASE EVENT DATE: 20240101
